FAERS Safety Report 13975540 (Version 2)
Quarter: 2017Q4

REPORT INFORMATION
  Report Type: Spontaneous
  Country: KR (occurrence: KR)
  Receive Date: 20170915
  Receipt Date: 20171117
  Transmission Date: 20180321
  Serious: Yes (Other)
  Sender: FDA-Public Use
  Company Number: KR-009507513-1708KOR004533

PATIENT
  Age: 70 Year
  Sex: Male

DRUGS (11)
  1. POSACONAZOLE [Suspect]
     Active Substance: POSACONAZOLE
     Dosage: UNK
     Route: 048
  2. DENOGAN [Concomitant]
     Active Substance: PROPACETAMOL HYDROCHLORIDE
     Indication: FEBRILE NEUTROPENIA
     Dosage: 1 G, ONCE
     Route: 042
     Dates: start: 20170718, end: 20170718
  3. HYDROXYCHLOROQUINE SULFATE. [Concomitant]
     Active Substance: HYDROXYCHLOROQUINE SULFATE
     Indication: RHEUMATOID ARTHRITIS
     Dosage: 300 MG, ONCE DAILY
     Route: 048
     Dates: start: 20160126
  4. ARAVA [Concomitant]
     Active Substance: LEFLUNOMIDE
     Indication: RHEUMATOID ARTHRITIS
     Dosage: 20 MG, ONCE DAILY
     Route: 048
     Dates: start: 20160126
  5. DICAMAX [Concomitant]
     Indication: RHEUMATOID ARTHRITIS
     Dosage: 1 TABLET, ONCE DAILY
     Route: 048
     Dates: start: 20160126
  6. TAZOPERAN [Concomitant]
     Indication: INFECTION
     Dosage: 4.5 G, QID
     Route: 042
     Dates: start: 20170713, end: 20170717
  7. NOXAFIL [Suspect]
     Active Substance: POSACONAZOLE
     Indication: FUNGAL INFECTION
     Dosage: 300 MG, TWICE A DAY
     Route: 048
     Dates: start: 20170719, end: 20170719
  8. SUSPEN (ACETAMINOPHEN) [Concomitant]
     Indication: FEBRILE NEUTROPENIA
     Dosage: 650 MG, ONCE
     Route: 048
     Dates: start: 20170717, end: 20170717
  9. VALCIVIR [Suspect]
     Active Substance: VALACYCLOVIR HYDROCHLORIDE
     Indication: INFECTION
     Dosage: 1 TABLET, ONCE DAILY
     Route: 048
     Dates: start: 20170720, end: 20170721
  10. NOXAFIL [Suspect]
     Active Substance: POSACONAZOLE
     Dosage: 300 MG, ONCE A DAY
     Route: 048
     Dates: start: 20170720, end: 20170722
  11. MEBAPENEM [Suspect]
     Active Substance: MEROPENEM
     Indication: INFECTION
     Dosage: 1 G, THREE TIMES A DAY
     Route: 042
     Dates: start: 20170718

REACTIONS (1)
  - Drug-induced liver injury [Recovered/Resolved]

NARRATIVE: CASE EVENT DATE: 20170721
